FAERS Safety Report 9074370 (Version 1)
Quarter: 2013Q1

REPORT INFORMATION
  Report Type: Spontaneous
  Country: US (occurrence: US)
  Receive Date: 20130128
  Receipt Date: 20130128
  Transmission Date: 20140127
  Serious: No
  Sender: FDA-Public Use
  Company Number: US-ABBOTT-12P-163-0910005-00

PATIENT
  Sex: Female
  Weight: 97.61 kg

DRUGS (13)
  1. HUMIRA 40 MG/0.8 ML PEN [Suspect]
     Indication: RHEUMATOID ARTHRITIS
     Dates: start: 201109
  2. OMEPRAZOLE [Concomitant]
     Indication: GASTROOESOPHAGEAL REFLUX DISEASE
  3. METHOTREXATE [Concomitant]
     Indication: RHEUMATOID ARTHRITIS
  4. FOLIC ACID [Concomitant]
     Indication: VITAMIN SUPPLEMENTATION
  5. CYMBALTA [Concomitant]
     Indication: CARDIAC DISORDER
  6. CYMBALTA [Concomitant]
     Indication: PAIN
  7. SECTRAL [Concomitant]
     Indication: CARDIAC DISORDER
  8. GABAPENTIN [Concomitant]
     Indication: NEURALGIA
  9. HYDROCODONE [Concomitant]
     Indication: PAIN
  10. GLUCOSAMINE + CHONDROITIN [Concomitant]
     Indication: RHEUMATOID ARTHRITIS
  11. FISH OIL [Concomitant]
     Indication: MEDICAL DIET
  12. CALCIUM [Concomitant]
     Indication: MINERAL SUPPLEMENTATION
  13. ZOLPIDEM [Concomitant]
     Indication: SLEEP DISORDER THERAPY

REACTIONS (6)
  - Drug ineffective [Not Recovered/Not Resolved]
  - Arthralgia [Not Recovered/Not Resolved]
  - Joint swelling [Not Recovered/Not Resolved]
  - Local swelling [Not Recovered/Not Resolved]
  - Back pain [Not Recovered/Not Resolved]
  - Neck pain [Not Recovered/Not Resolved]
